FAERS Safety Report 6905800-1 (Version None)
Quarter: 2010Q3

REPORT INFORMATION
  Report Type: 
  Country: None (occurrence: None)
  Receive Date: 20100804
  Receipt Date: 20100729
  Transmission Date: 20110219
  Serious: Yes (Hospitalization)
  Sender: FDA-Public Use
  Company Number: DE-ROCHE-664787

PATIENT
  Sex: Female
  Weight: 79 kg

DRUGS (8)
  1. TRASTUZUMAB [Suspect]
     Dosage: TOTAL DOSE: 504 MG; FORM: VIALS, LAST DOSE PRIOR TO SAE:13 JULY 2009, LOADING DOSE
     Route: 042
     Dates: start: 20090318
  2. TRASTUZUMAB [Suspect]
     Dosage: TOTAL DOSE: 504 MG; FORM: VIALS, LAST DOSE PRIOR TO SAE:13 JULY 2009, MAINTAINANCE DOSE
     Route: 042
     Dates: start: 20090408
  3. DOCETAXEL [Suspect]
     Dosage: TOTAL DOSE: 147 MG; FORM: VIALS LAST DOSE PRIOR TO SAE: 13 JULY 2009.
     Route: 042
     Dates: start: 20090313
  4. CARBOPLATIN [Suspect]
     Dosage: DOSE LEVEL: 6 AUC, FORM: VIALS,LAST DOSE PRIOR TO SAE: 13 JULY 2009.
     Route: 042
     Dates: start: 20090318
  5. ATACAND HCT [Concomitant]
     Indication: HYPERTONIA
     Dates: start: 20000401
  6. SIMVASTATIN [Concomitant]
     Dates: start: 20000401
  7. PANTOZOL [Concomitant]
     Dates: start: 20090628
  8. CLEXANE [Concomitant]

REACTIONS (3)
  - DIARRHOEA [None]
  - NEUTROPENIA [None]
  - SYNCOPE [None]
